FAERS Safety Report 8495408-1 (Version None)
Quarter: 2012Q3

REPORT INFORMATION
  Report Type: 
  Country: None (occurrence: None)
  Receive Date: 20120709
  Receipt Date: 20120628
  Transmission Date: 20120928
  Serious: Yes (Life-Threatening, Hospitalization)
  Sender: FDA-Public Use
  Company Number: JP-MSD JAPAN-1205USA03090

PATIENT

DRUGS (8)
  1. ROCEPHIN [Concomitant]
     Indication: MYELODYSPLASTIC SYNDROME
     Dosage: 1 G, QD
     Route: 042
     Dates: start: 20120417, end: 20120420
  2. LEVOFLOXACIN [Concomitant]
     Indication: PROPHYLAXIS
     Dosage: 500 MG, QD
     Route: 048
     Dates: start: 20120413, end: 20120416
  3. ZOLINZA [Suspect]
     Indication: MYCOSIS FUNGOIDES
     Dosage: 400 MG, QD
     Route: 048
     Dates: start: 20120403, end: 20120413
  4. CELESTAMINE TAB [Concomitant]
     Indication: MYCOSIS FUNGOIDES
     Dosage: DAILY DOSAGE UNKNOWN
     Route: 048
  5. ITRACONAZOLE [Concomitant]
     Indication: PROPHYLAXIS
     Dosage: 200 MG, QD
     Route: 048
  6. PEPCIDINE [Concomitant]
     Indication: PROPHYLAXIS
     Dosage: 20 MG, QD
     Route: 048
  7. ZOLINZA [Suspect]
     Dosage: 300 MG, QD
     Route: 048
     Dates: start: 20120414, end: 20120420
  8. ALLEGRA [Concomitant]
     Indication: MYCOSIS FUNGOIDES
     Dosage: 60 MG, BID
     Route: 048

REACTIONS (4)
  - DEHYDRATION [None]
  - HYPOKALAEMIA [None]
  - DIARRHOEA [None]
  - BLOOD PRESSURE DECREASED [None]
